FAERS Safety Report 9326126 (Version 1)
Quarter: 2013Q2

REPORT INFORMATION
  Report Type: Spontaneous
  Country: US (occurrence: US)
  Receive Date: 20130604
  Receipt Date: 20130604
  Transmission Date: 20140414
  Serious: No
  Sender: FDA-Public Use
  Company Number: US-BAYER-2013-056130

PATIENT
  Age: 57 Year
  Sex: Male

DRUGS (1)
  1. GADAVIST [Suspect]
     Indication: BRAIN NEOPLASM
     Dosage: 10 ML, ONCE
     Route: 042
     Dates: start: 20130321, end: 20130321

REACTIONS (2)
  - Rash erythematous [None]
  - Urticaria [None]
